FAERS Safety Report 15340488 (Version 1)
Quarter: 2018Q3

REPORT INFORMATION
  Report Type: Spontaneous
  Country: US (occurrence: US)
  Receive Date: 20180831
  Receipt Date: 20180831
  Transmission Date: 20181010
  Serious: No
  Sender: FDA-Public Use
  Company Number: US-CELGENEUS-USA-20180809714

PATIENT
  Sex: Male

DRUGS (2)
  1. POMALYST [Suspect]
     Active Substance: POMALIDOMIDE
     Indication: PLASMA CELL MYELOMA
     Dosage: 4 MILLIGRAM
     Route: 048
     Dates: start: 20170724
  2. POMALYST [Suspect]
     Active Substance: POMALIDOMIDE
     Dosage: 1 MILLIGRAM
     Route: 048
     Dates: start: 201806

REACTIONS (4)
  - Skin haemorrhage [Not Recovered/Not Resolved]
  - Fatigue [Not Recovered/Not Resolved]
  - Asthenia [Not Recovered/Not Resolved]
  - Oedema peripheral [Not Recovered/Not Resolved]

NARRATIVE: CASE EVENT DATE: 2017
